FAERS Safety Report 6578700-7 (Version None)
Quarter: 2010Q1

REPORT INFORMATION
  Report Type: 
  Country: None (occurrence: None)
  Receive Date: 20100201
  Receipt Date: 20100119
  Transmission Date: 20100710
  Serious: Yes (Hospitalization)
  Sender: FDA-Public Use
  Company Number: 1000011531

PATIENT
  Age: 59 Year
  Sex: Male

DRUGS (5)
  1. CITALOPRAM HYDROBROMIDE [Suspect]
     Dosage: 10 MG 910 MG, 1 IN 1 D), ORAL; 20 MG 920 MG, 1 IN 1 D), ORAL
     Route: 048
     Dates: start: 20061026, end: 20061101
  2. CITALOPRAM HYDROBROMIDE [Suspect]
     Dosage: 10 MG 910 MG, 1 IN 1 D), ORAL; 20 MG 920 MG, 1 IN 1 D), ORAL
     Route: 048
     Dates: start: 20061102, end: 20061108
  3. CITALOPRAM HYDROBROMIDE [Suspect]
     Dosage: 30 MG (30 MG, 1 IN 1 D), ORAL
     Route: 048
     Dates: start: 20061109, end: 20061113
  4. DOXEPIN HCL [Suspect]
     Dosage: 50-70 MG (1 IN 1 D), ORAL
     Route: 048
     Dates: start: 19860101, end: 20061116
  5. BEZAFIBRAT RATIO [Concomitant]

REACTIONS (6)
  - ANXIETY [None]
  - CHEST DISCOMFORT [None]
  - DRUG INTERACTION [None]
  - DYSPHAGIA [None]
  - DYSPNOEA [None]
  - MUSCULOSKELETAL STIFFNESS [None]
